FAERS Safety Report 14746117 (Version 1)
Quarter: 2018Q2

REPORT INFORMATION
  Report Type: Spontaneous
  Country: IN (occurrence: IN)
  Receive Date: 20180411
  Receipt Date: 20180411
  Transmission Date: 20180711
  Serious: Yes (Other)
  Sender: FDA-Public Use
  Company Number: IN-SUNOVION-2018SUN001242

PATIENT
  Age: 50 Year
  Sex: Female

DRUGS (6)
  1. ESZOPICLONE. [Suspect]
     Active Substance: ESZOPICLONE
     Indication: SCHIZOPHRENIA
     Dosage: 2 MG, QD
     Route: 048
  2. ESZOPICLONE. [Suspect]
     Active Substance: ESZOPICLONE
     Dosage: 2 MG, QD
     Route: 048
  3. ILOPERIDONE. [Concomitant]
     Active Substance: ILOPERIDONE
     Dosage: 24 MG, QD
  4. ESZOPICLONE. [Suspect]
     Active Substance: ESZOPICLONE
     Dosage: 2 MG, QD
     Route: 048
  5. ATORVASTATIN [Concomitant]
     Active Substance: ATORVASTATIN
     Indication: DYSLIPIDAEMIA
  6. ILOPERIDONE. [Concomitant]
     Active Substance: ILOPERIDONE
     Indication: SCHIZOPHRENIA
     Dosage: 16 MG, QD

REACTIONS (2)
  - Schizophrenia [Recovered/Resolved]
  - Off label use [Unknown]
